FAERS Safety Report 12610113 (Version 2)
Quarter: 2016Q3

REPORT INFORMATION
  Report Type: Spontaneous
  Country: SK (occurrence: SK)
  Receive Date: 20160801
  Receipt Date: 20160811
  Transmission Date: 20161109
  Serious: Yes (Death)
  Sender: FDA-Public Use
  Company Number: PHHY2016SK104815

PATIENT
  Age: 74 Year
  Sex: Female

DRUGS (3)
  1. ARZERRA [Suspect]
     Active Substance: OFATUMUMAB
     Indication: CHRONIC LYMPHOCYTIC LEUKAEMIA
     Dosage: 300 MG, QD
     Route: 065
     Dates: start: 20160426
  2. ARZERRA [Suspect]
     Active Substance: OFATUMUMAB
     Dosage: 1000 MG, QD
     Route: 065
     Dates: start: 20160503
  3. BENDAMUSTINE [Suspect]
     Active Substance: BENDAMUSTINE
     Indication: CHRONIC LYMPHOCYTIC LEUKAEMIA
     Dosage: 80 MG/M2, UNK
     Route: 065
     Dates: start: 20160427, end: 20160428

REACTIONS (1)
  - Death [Fatal]

NARRATIVE: CASE EVENT DATE: 20160617
